FAERS Safety Report 20012594 (Version 2)
Quarter: 2021Q4

REPORT INFORMATION
  Report Type: Report from Study
  Country: US (occurrence: US)
  Receive Date: 20211029
  Receipt Date: 20211231
  Transmission Date: 20220303
  Serious: Yes (Hospitalization, Other)
  Sender: FDA-Public Use
  Company Number: US-ABBVIE-21K-163-4016233-00

PATIENT
  Sex: Female

DRUGS (2)
  1. IMBRUVICA [Suspect]
     Active Substance: IBRUTINIB
     Indication: Chronic lymphocytic leukaemia
     Route: 048
     Dates: start: 202008
  2. IMBRUVICA [Suspect]
     Active Substance: IBRUTINIB
     Indication: Chronic lymphocytic leukaemia
     Route: 048

REACTIONS (8)
  - Breast operation [Unknown]
  - Breast cancer female [Not Recovered/Not Resolved]
  - Cerebral disorder [Unknown]
  - Blood urea abnormal [Not Recovered/Not Resolved]
  - Illness [Not Recovered/Not Resolved]
  - Nipple disorder [Not Recovered/Not Resolved]
  - Nausea [Not Recovered/Not Resolved]
  - Breast operation [Unknown]

NARRATIVE: CASE EVENT DATE: 20210101
